FAERS Safety Report 5431887-1 (Version None)
Quarter: 2007Q3

REPORT INFORMATION
  Report Type: 
  Country: None (occurrence: None)
  Receive Date: 20070830
  Receipt Date: 20070820
  Transmission Date: 20080115
  Serious: Yes (Other)
  Sender: FDA-Public Use
  Company Number: US-PFIZER INC-2007050227

PATIENT
  Sex: Female

DRUGS (1)
  1. LYRICA [Suspect]
     Indication: POST HERPETIC NEURALGIA
     Dates: start: 20070108, end: 20070122

REACTIONS (7)
  - ANTINUCLEAR ANTIBODY POSITIVE [None]
  - CATARACT [None]
  - ELECTROPHORESIS PROTEIN [None]
  - FULL BLOOD COUNT ABNORMAL [None]
  - RED BLOOD CELL SEDIMENTATION RATE ABNORMAL [None]
  - SYPHILIS TEST [None]
  - VISION BLURRED [None]
